FAERS Safety Report 26032608 (Version 2)
Quarter: 2025Q4

REPORT INFORMATION
  Report Type: Spontaneous
  Country: EU (occurrence: EU)
  Receive Date: 20251112
  Receipt Date: 20251223
  Transmission Date: 20260118
  Serious: Yes (Other)
  Sender: NOVARTIS
  Company Number: EU-002147023-NVSC2025DE172622

PATIENT
  Age: 57 Year
  Sex: Male

DRUGS (9)
  1. LEQVIO [Suspect]
     Active Substance: INCLISIRAN SODIUM
     Indication: Type IIa hyperlipidaemia
     Dosage: 284 MG (STARTING 3 MONTHS, THEN EVERY 6 MONTHS)
     Route: 065
  2. Clopidogrel TAD [Concomitant]
     Indication: Product used for unknown indication
     Dosage: 75 MG, QD (1-0-0-0)
     Route: 065
     Dates: start: 2025
  3. XARELTO [Concomitant]
     Active Substance: RIVAROXABAN
     Indication: Product used for unknown indication
     Dosage: 20 MG (1-0-0-0)
     Route: 065
     Dates: start: 2025
  4. HYGROTON [Concomitant]
     Active Substance: CHLORTHALIDONE
     Indication: Product used for unknown indication
     Dosage: 25 MG (1-0-0-0)
     Route: 065
     Dates: start: 2025
  5. CANDESARTAN CILEXETIL [Concomitant]
     Active Substance: CANDESARTAN CILEXETIL
     Indication: Product used for unknown indication
     Dosage: 16 MG, BID (1-0-1-0)
     Route: 065
     Dates: start: 2025
  6. BEMPEDOIC ACID\EZETIMIBE [Concomitant]
     Active Substance: BEMPEDOIC ACID\EZETIMIBE
     Indication: Product used for unknown indication
     Dosage: UNK MG, QD (180/10 MG) (0-0-1)
     Route: 065
     Dates: start: 2025
  7. CALCIUM GLUCONATE [Concomitant]
     Active Substance: CALCIUM GLUCONATE
     Indication: Product used for unknown indication
     Dosage: UNK (3)
     Route: 042
  8. CLOPIDOGREL [Concomitant]
     Active Substance: CLOPIDOGREL BISULFATE
     Indication: Product used for unknown indication
     Dosage: 75 MG, QD (1-0-0-0)
     Route: 065
     Dates: start: 202209
  9. MAGNESIUM GLUTAMATE [Concomitant]
     Active Substance: MAGNESIUM GLUTAMATE
     Indication: Product used for unknown indication
     Dosage: UNK (DRAG?E) (2-0-2-0)
     Route: 065

REACTIONS (8)
  - Coronary artery disease [Unknown]
  - Atrial fibrillation [Recovered/Resolved]
  - Blood pressure increased [Unknown]
  - Angina pectoris [Recovered/Resolved]
  - Hypercholesterolaemia [Unknown]
  - Lipoprotein (a) increased [Unknown]
  - Tachycardia [Recovered/Resolved]
  - Palpitations [Recovered/Resolved]

NARRATIVE: CASE EVENT DATE: 20220225
